FAERS Safety Report 5065146-6 (Version None)
Quarter: 2006Q3

REPORT INFORMATION
  Report Type: 
  Country: None (occurrence: None)
  Receive Date: 20060725
  Receipt Date: 20060712
  Transmission Date: 20061208
  Serious: Yes (Other)
  Sender: FDA-Public Use
  Company Number: B0430014A

PATIENT
  Age: 75 Year
  Sex: Female

DRUGS (5)
  1. PAXIL [Suspect]
     Indication: DEPRESSION
     Dosage: 20 MG IN THE MORNING
  2. NAFTIDROFURYL OXYLATE [Concomitant]
  3. ZOLPIDEM TARTRATE [Concomitant]
  4. TARDYFERON [Concomitant]
  5. ALPRAZOLAM [Concomitant]

REACTIONS (9)
  - ABASIA [None]
  - BALANCE DISORDER [None]
  - CONFUSIONAL STATE [None]
  - FALL [None]
  - GROIN PAIN [None]
  - HYPONATRAEMIA [None]
  - INCOHERENT [None]
  - INCONTINENCE [None]
  - VISION BLURRED [None]
